FAERS Safety Report 8593514-4 (Version None)
Quarter: 2012Q3

REPORT INFORMATION
  Report Type: 
  Country: None (occurrence: None)
  Receive Date: 20120814
  Receipt Date: 20120807
  Transmission Date: 20120928
  Serious: Yes (Hospitalization, Other)
  Sender: FDA-Public Use
  Company Number: FR-ELI_LILLY_AND_COMPANY-FR201208001753

PATIENT
  Sex: Female

DRUGS (6)
  1. CYMBALTA [Suspect]
     Dosage: 30 MG, QD
  2. CYMBALTA [Suspect]
     Dosage: 30 MG, QOD
     Dates: start: 20120627, end: 20120702
  3. CYMBALTA [Suspect]
     Dosage: 60 MG, UNKNOWN
  4. CYMBALTA [Suspect]
     Indication: NEUROPATHY PERIPHERAL
     Dosage: 30 MG, QD
     Dates: start: 20120601
  5. VEPESID [Concomitant]
     Dosage: 160 MG, QOD
     Dates: start: 20120611, end: 20120615
  6. CISPLATIN [Concomitant]
     Dosage: 160 MG, SINGLE
     Dates: start: 20120611

REACTIONS (2)
  - HYPONATRAEMIA [None]
  - BONE MARROW FAILURE [None]
